FAERS Safety Report 8436189-7 (Version None)
Quarter: 2012Q2

REPORT INFORMATION
  Report Type: 
  Country: None (occurrence: None)
  Receive Date: 20120614
  Receipt Date: 20120613
  Transmission Date: 20120825
  Serious: Yes (Life-Threatening, Hospitalization)
  Sender: FDA-Public Use
  Company Number: JP-PFIZER INC-2012128207

PATIENT
  Age: 70 Year
  Sex: Male

DRUGS (3)
  1. ZOLOFT [Suspect]
     Indication: DEPRESSION
     Dosage: 50 MG/DAY
     Route: 048
  2. ZOLOFT [Suspect]
     Dosage: 50 MG/DAY
     Route: 048
  3. ZOLOFT [Suspect]
     Dosage: 150 MG/DAY
     Route: 048

REACTIONS (3)
  - HEADACHE [None]
  - OVERDOSE [None]
  - NEOPLASM MALIGNANT [None]
